FAERS Safety Report 23921172 (Version 1)
Quarter: 2024Q2

REPORT INFORMATION
  Report Type: Spontaneous
  Country: FR (occurrence: FR)
  Receive Date: 20240530
  Receipt Date: 20240530
  Transmission Date: 20240717
  Serious: Yes (Hospitalization)
  Sender: FDA-Public Use
  Company Number: None

PATIENT
  Age: 72 Year
  Sex: Female
  Weight: 58 kg

DRUGS (5)
  1. STIVARGA [Suspect]
     Active Substance: REGORAFENIB\REGORAFENIB MONOHYDRATE
     Indication: Hepatocellular carcinoma
     Dosage: 80 MG, QD
     Route: 048
     Dates: start: 20240318
  2. ATEZOLIZUMAB [Suspect]
     Active Substance: ATEZOLIZUMAB
     Indication: Hepatocellular carcinoma
     Dosage: UNK
     Route: 042
     Dates: start: 20231222, end: 20240305
  3. BEVACIZUMAB [Suspect]
     Active Substance: BEVACIZUMAB
     Indication: Hepatocellular carcinoma
     Dosage: UNK
     Route: 042
     Dates: start: 20231222, end: 20240305
  4. LOPERAMIDE [Concomitant]
     Active Substance: LOPERAMIDE
     Dosage: UNK
  5. IRBESARTAN [Concomitant]
     Active Substance: IRBESARTAN
     Dosage: UNK

REACTIONS (6)
  - Acute kidney injury [Recovering/Resolving]
  - Myocarditis [Recovering/Resolving]
  - Rash erythematous [Recovering/Resolving]
  - Eosinophilia [Recovering/Resolving]
  - Thrombotic microangiopathy [Recovering/Resolving]
  - Off label use [None]

NARRATIVE: CASE EVENT DATE: 20240318
